FAERS Safety Report 7512753-4 (Version None)
Quarter: 2011Q2

REPORT INFORMATION
  Report Type: 
  Country: None (occurrence: None)
  Receive Date: 20110531
  Receipt Date: 20101007
  Transmission Date: 20111010
  Serious: Yes (Other)
  Sender: FDA-Public Use
  Company Number: A0885355A

PATIENT
  Sex: Female

DRUGS (3)
  1. LYRICA [Concomitant]
     Route: 065
  2. TYKERB [Suspect]
     Dosage: 1250MG PER DAY
     Route: 048
     Dates: start: 20100728, end: 20110506
  3. XELODA [Suspect]
     Route: 065
     Dates: end: 20110506

REACTIONS (2)
  - PALMAR-PLANTAR ERYTHRODYSAESTHESIA SYNDROME [None]
  - LOCALISED INFECTION [None]
